FAERS Safety Report 19467194 (Version 2)
Quarter: 2021Q3

REPORT INFORMATION
  Report Type: Spontaneous
  Country: RO (occurrence: RO)
  Receive Date: 20210628
  Receipt Date: 20210703
  Transmission Date: 20211014
  Serious: Yes (Hospitalization, Other)
  Sender: FDA-Public Use
  Company Number: RO-AUROBINDO-AUR-APL-2021-026742

PATIENT
  Age: 53 Year
  Sex: Male
  Weight: 105 kg

DRUGS (7)
  1. RITONAVIR. [Concomitant]
     Active Substance: RITONAVIR
     Indication: HIV INFECTION CDC CATEGORY C
     Dosage: UNK
     Route: 065
     Dates: start: 2014
  2. GLICAZIDA [Concomitant]
     Active Substance: GLICLAZIDE
     Indication: TYPE 2 DIABETES MELLITUS
     Dosage: UNK
     Route: 048
  3. TENOFOVIR DISOPROXIL FILM COATED TABLETS [Suspect]
     Active Substance: TENOFOVIR DISOPROXIL
     Indication: HIV INFECTION CDC CATEGORY C
     Dosage: UNK
     Route: 065
     Dates: start: 2014, end: 2019
  4. ATAZANAVIR. [Suspect]
     Active Substance: ATAZANAVIR
     Indication: HIV INFECTION CDC CATEGORY C
     Dosage: UNK
     Route: 065
  5. ATAZANAVIR;RITONAVIR [Suspect]
     Active Substance: ATAZANAVIR\RITONAVIR
     Indication: HIV INFECTION CDC CATEGORY C
     Dosage: UNK
     Route: 065
  6. EMTRICITABINE [Suspect]
     Active Substance: EMTRICITABINE
     Indication: HIV INFECTION CDC CATEGORY C
     Dosage: UNK
     Route: 065
     Dates: start: 2014
  7. METFORMIN [Concomitant]
     Active Substance: METFORMIN HYDROCHLORIDE
     Indication: TYPE 2 DIABETES MELLITUS
     Dosage: UNK
     Route: 048

REACTIONS (25)
  - Polyuria [Recovering/Resolving]
  - Chlamydial infection [Unknown]
  - Autoimmune thyroiditis [Unknown]
  - Nephropathy toxic [Recovering/Resolving]
  - Renal fusion anomaly [Unknown]
  - Polydipsia [Recovering/Resolving]
  - Nocturia [Recovering/Resolving]
  - Syphilis [Unknown]
  - Proteinuria [Recovering/Resolving]
  - Hyposthenuria [Recovering/Resolving]
  - Haematuria [Unknown]
  - Urethral discharge [Unknown]
  - Hyperglycaemia [Unknown]
  - Leukocyturia [Recovering/Resolving]
  - Chronic kidney disease [Recovering/Resolving]
  - Urogenital infection bacterial [Unknown]
  - Benign prostatic hyperplasia [Unknown]
  - Jaundice [Unknown]
  - Prostatitis [Unknown]
  - Vitamin D deficiency [Unknown]
  - Pollakiuria [Recovering/Resolving]
  - Renal tubular dysfunction [Unknown]
  - Hypophosphataemia [Unknown]
  - Rhinophyma [Unknown]
  - Central obesity [Unknown]

NARRATIVE: CASE EVENT DATE: 2019
